FAERS Safety Report 7290631-6 (Version None)
Quarter: 2011Q1

REPORT INFORMATION
  Report Type: 
  Country: None (occurrence: None)
  Receive Date: 20110214
  Receipt Date: 20110207
  Transmission Date: 20110831
  Serious: Yes (Hospitalization)
  Sender: FDA-Public Use
  Company Number: JP-JNJFOC-20110201228

PATIENT
  Age: 8 Year
  Sex: Female

DRUGS (2)
  1. RISPERDAL [Suspect]
     Indication: PRODUCT USED FOR UNKNOWN INDICATION
     Route: 048
  2. CARBAMAZEPINE [Suspect]
     Indication: PRODUCT USED FOR UNKNOWN INDICATION

REACTIONS (10)
  - TREMOR [None]
  - SOMNOLENCE [None]
  - SPEECH DISORDER [None]
  - DRUG PRESCRIBING ERROR [None]
  - DECREASED ACTIVITY [None]
  - FEELING COLD [None]
  - ASTHENIA [None]
  - SEDATION [None]
  - DRUG DISPENSING ERROR [None]
  - DYSKINESIA [None]
